FAERS Safety Report 24986686 (Version 1)
Quarter: 2025Q1

REPORT INFORMATION
  Report Type: Spontaneous
  Country: US (occurrence: None)
  Receive Date: 20250219
  Receipt Date: 20250219
  Transmission Date: 20250408
  Serious: No
  Sender: FDA-CTU
  Company Number: None

PATIENT
  Age: 4 Month
  Sex: Female

DRUGS (1)
  1. BEVACIZUMAB [Suspect]
     Active Substance: BEVACIZUMAB

REACTIONS (3)
  - Cataract [None]
  - Wrong technique in product usage process [None]
  - Post procedural complication [None]

NARRATIVE: CASE EVENT DATE: 20250130
